FAERS Safety Report 13900647 (Version 1)
Quarter: 2017Q3

REPORT INFORMATION
  Report Type: Spontaneous
  Country: US (occurrence: US)
  Receive Date: 20170824
  Receipt Date: 20170824
  Transmission Date: 20171127
  Serious: Yes (Hospitalization, Other)
  Sender: FDA-Public Use
  Company Number: US-APOTEX-2017AP016875

PATIENT
  Age: 42 Year
  Sex: Female

DRUGS (6)
  1. AMPHOTERICIN B. [Suspect]
     Active Substance: AMPHOTERICIN B
     Indication: COCCIDIOIDOMYCOSIS
     Route: 065
  2. LAMIVUDINE. [Concomitant]
     Active Substance: LAMIVUDINE
     Indication: HEPATITIS B VIRUS TEST POSITIVE
     Route: 065
  3. FLUCONAZOLE TABLETS [Suspect]
     Active Substance: FLUCONAZOLE
     Indication: COCCIDIOIDOMYCOSIS
     Route: 048
  4. TRIMETHOPRIM SULFAMETHOXAZOLE [Concomitant]
     Active Substance: SULFAMETHOXAZOLE\TRIMETHOPRIM
     Indication: HEPATITIS B VIRUS TEST POSITIVE
     Route: 065
  5. GANCICLOVIR. [Concomitant]
     Active Substance: GANCICLOVIR
     Indication: HEPATITIS B VIRUS TEST POSITIVE
     Route: 065
  6. TACROLIMUS. [Concomitant]
     Active Substance: TACROLIMUS
     Indication: IMMUNOSUPPRESSION
     Route: 065

REACTIONS (7)
  - Condition aggravated [Recovering/Resolving]
  - Coccidioidomycosis [Recovering/Resolving]
  - Infectious thyroiditis [Recovering/Resolving]
  - Renal impairment [Recovering/Resolving]
  - Drug ineffective [Unknown]
  - Electrolyte imbalance [Recovering/Resolving]
  - Primary hypothyroidism [Unknown]
